FAERS Safety Report 25153143 (Version 1)
Quarter: 2025Q2

REPORT INFORMATION
  Report Type: Spontaneous
  Country: IT (occurrence: IT)
  Receive Date: 20250403
  Receipt Date: 20250403
  Transmission Date: 20250716
  Serious: Yes (Other)
  Sender: AUROBINDO
  Company Number: IT-MINISAL02-1030643

PATIENT
  Age: 57 Year
  Sex: Male
  Weight: 85 kg

DRUGS (15)
  1. EZETIMIBE [Suspect]
     Active Substance: EZETIMIBE
     Indication: Blood cholesterol increased
     Route: 048
     Dates: start: 20231128, end: 20241221
  2. CLOZAPINE [Concomitant]
     Active Substance: CLOZAPINE
     Indication: Product use in unapproved indication
     Route: 048
  3. NEBIVOLOL [Concomitant]
     Active Substance: NEBIVOLOL
     Indication: Product use in unapproved indication
     Route: 048
  4. TIROSINT [Concomitant]
     Active Substance: LEVOTHYROXINE SODIUM
     Indication: Product use in unapproved indication
     Route: 048
  5. VALPROATE SODIUM [Concomitant]
     Active Substance: VALPROATE SODIUM
     Indication: Product use in unapproved indication
     Route: 048
  6. Tavor [Concomitant]
     Indication: Product use in unapproved indication
     Route: 048
  7. HALDOL [Concomitant]
     Active Substance: HALOPERIDOL
     Indication: Product use in unapproved indication
     Route: 048
  8. ALLOPURINOL [Concomitant]
     Active Substance: ALLOPURINOL
     Indication: Product use in unapproved indication
     Route: 048
  9. QUETIAPINE [Concomitant]
     Active Substance: QUETIAPINE
     Indication: Product use in unapproved indication
     Route: 048
  10. CALCIFEDIOL [Concomitant]
     Active Substance: CALCIFEDIOL
     Indication: Product use in unapproved indication
     Route: 048
  11. PANTOPRAZOLE SODIUM [Concomitant]
     Active Substance: PANTOPRAZOLE SODIUM
     Indication: Product use in unapproved indication
     Route: 048
  12. VALSARTAN [Concomitant]
     Active Substance: VALSARTAN
     Indication: Product use in unapproved indication
     Route: 048
  13. ALFUZOSIN [Concomitant]
     Active Substance: ALFUZOSIN
     Indication: Product use in unapproved indication
     Route: 048
  14. DAPAGLIFLOZIN [Concomitant]
     Active Substance: DAPAGLIFLOZIN
     Indication: Product use in unapproved indication
     Route: 048
  15. OMEGA 3 [Concomitant]
     Active Substance: CAPSAICIN
     Route: 048

REACTIONS (2)
  - Gastrointestinal disorder [Not Recovered/Not Resolved]
  - Myalgia [Not Recovered/Not Resolved]

NARRATIVE: CASE EVENT DATE: 20231128
